FAERS Safety Report 9578282 (Version 1)
Quarter: 2013Q4

REPORT INFORMATION
  Report Type: Spontaneous
  Country: US (occurrence: US)
  Receive Date: 20131001
  Receipt Date: 20131001
  Transmission Date: 20140711
  Serious: No
  Sender: FDA-Public Use
  Company Number: US-AMGEN-USASP2013012272

PATIENT
  Age: 46 Year
  Sex: Male
  Weight: 82.54 kg

DRUGS (3)
  1. ENBREL [Suspect]
     Indication: RHEUMATOID ARTHRITIS
     Dosage: 50 MG, UNK
     Route: 058
  2. ENBREL [Suspect]
  3. METHOTREXATE [Concomitant]
     Dosage: UNK

REACTIONS (4)
  - Rash [Unknown]
  - Hypersensitivity [Unknown]
  - Pain in extremity [Unknown]
  - Local swelling [Unknown]
